FAERS Safety Report 6555025-7 (Version None)
Quarter: 2010Q1

REPORT INFORMATION
  Report Type: 
  Country: None (occurrence: None)
  Receive Date: 20100126
  Receipt Date: 20100126
  Transmission Date: 20100710
  Serious: Yes (Other)
  Sender: FDA-Public Use
  Company Number: None

PATIENT
  Sex: Male
  Weight: 92.9874 kg

DRUGS (1)
  1. PROAIR HFA [Suspect]
     Indication: ASTHMA
     Dosage: 90 MCG AS NEEDED INHAL
     Route: 055
     Dates: start: 20080101, end: 20080501

REACTIONS (3)
  - DRUG INEFFECTIVE [None]
  - OROPHARYNGEAL PAIN [None]
  - RESPIRATORY TRACT IRRITATION [None]
